FAERS Safety Report 7137819-2 (Version None)
Quarter: 2010Q4

REPORT INFORMATION
  Report Type: 
  Country: None (occurrence: None)
  Receive Date: 20101103
  Receipt Date: 20100413
  Transmission Date: 20110411
  Serious: Yes (Hospitalization)
  Sender: FDA-Public Use
  Company Number: 2010S1000186

PATIENT
  Age: 50 Year
  Sex: Male
  Weight: 48.3 kg

DRUGS (1)
  1. CUBICIN [Suspect]

REACTIONS (2)
  - INFECTION [None]
  - STAPHYLOCOCCAL INFECTION [None]
